FAERS Safety Report 6665188-0 (Version None)
Quarter: 2010Q2

REPORT INFORMATION
  Report Type: 
  Country: None (occurrence: None)
  Receive Date: 20100402
  Receipt Date: 20100319
  Transmission Date: 20101027
  Serious: Yes (Hospitalization)
  Sender: FDA-Public Use
  Company Number: PHHY2010US02232

PATIENT
  Sex: Female
  Weight: 65.2 kg

DRUGS (7)
  1. RECLAST [Suspect]
     Indication: OSTEOPOROSIS
     Dosage: 5 MG YEARLY
     Route: 042
     Dates: start: 20081129
  2. RECLAST [Suspect]
     Dosage: 5 MG/100ML
     Route: 042
     Dates: start: 20091218
  3. DIOVAN [Concomitant]
     Indication: HYPERTENSION
     Dosage: 160 MG, QD
     Route: 048
  4. METOPROLOL TARTRATE [Concomitant]
     Indication: HYPERTENSION
     Dosage: 25 MG, BID
     Route: 048
  5. HYDRALAZINE HCL [Concomitant]
     Indication: HYPERTENSION
     Dosage: 25 MG, BID
     Route: 048
  6. NEXIUM [Concomitant]
     Indication: GASTROOESOPHAGEAL REFLUX DISEASE
     Dosage: 40 MG AM
     Route: 048
  7. VITAMIN D3 [Concomitant]
     Dosage: 50000 IU, QW
     Route: 048

REACTIONS (5)
  - ARTHRALGIA [None]
  - BLOOD CALCIUM DECREASED [None]
  - GASTRIC BYPASS [None]
  - MALABSORPTION [None]
  - MYALGIA [None]
